FAERS Safety Report 4329656-9 (Version None)
Quarter: 2004Q2

REPORT INFORMATION
  Report Type: 
  Country: None (occurrence: None)
  Receive Date: 20040401
  Receipt Date: 20040326
  Transmission Date: 20050107
  Serious: Yes (Other)
  Sender: FDA-Public Use
  Company Number: PHBS2004JP04277

PATIENT
  Age: 50 Year
  Sex: Male

DRUGS (5)
  1. DIOVAN [Suspect]
     Indication: HYPERTENSION
     Dosage: 80 MG/DAY
     Route: 048
     Dates: start: 20030714, end: 20040219
  2. PERSANTIN-L [Concomitant]
     Dosage: 150 MG, UNK
     Route: 048
     Dates: start: 20031226
  3. LASIX [Concomitant]
     Dosage: 120 MG, UNK
     Route: 048
     Dates: start: 20031219
  4. GASTER [Concomitant]
     Dosage: 20 MG, UNK
     Route: 048
  5. ZYLORIC [Concomitant]
     Dosage: 50 MG, UNK
     Route: 048
     Dates: start: 20031107

REACTIONS (2)
  - BLOOD CREATINE PHOSPHOKINASE INCREASED [None]
  - DEHYDRATION [None]
